FAERS Safety Report 13496980 (Version 3)
Quarter: 2017Q2

REPORT INFORMATION
  Report Type: Spontaneous
  Country: US (occurrence: US)
  Receive Date: 20170428
  Receipt Date: 20170509
  Transmission Date: 20170830
  Serious: Yes (Hospitalization, Other)
  Sender: FDA-Public Use
  Company Number: US-JNJFOC-20170426851

PATIENT
  Sex: Female
  Weight: 44.45 kg

DRUGS (1)
  1. REMICADE [Suspect]
     Active Substance: INFLIXIMAB
     Indication: COLITIS ULCERATIVE
     Route: 042

REACTIONS (3)
  - Varicella virus test positive [Unknown]
  - Hospitalisation [Not Recovered/Not Resolved]
  - Colitis ulcerative [Not Recovered/Not Resolved]
